FAERS Safety Report 9104426 (Version 2)
Quarter: 2013Q3

REPORT INFORMATION
  Report Type: Spontaneous
  Country: JP (occurrence: JP)
  Receive Date: 20130219
  Receipt Date: 20130715
  Transmission Date: 20140515
  Serious: Yes (Hospitalization)
  Sender: FDA-Public Use
  Company Number: JP-009507513-1302JPN007490

PATIENT
  Age: 60 Year
  Sex: Male

DRUGS (1)
  1. REMERON TABLETS 15MG [Suspect]
     Indication: DEPRESSION
     Dosage: 15 MG, QD
     Route: 048

REACTIONS (2)
  - Inappropriate antidiuretic hormone secretion [Unknown]
  - Hyponatraemia [Unknown]
